FAERS Safety Report 8123152-9 (Version None)
Quarter: 2012Q1

REPORT INFORMATION
  Report Type: 
  Country: None (occurrence: None)
  Receive Date: 20120206
  Receipt Date: 20120123
  Transmission Date: 20120608
  Serious: Yes (Hospitalization, Other)
  Sender: FDA-Public Use
  Company Number: 2011MA003055

PATIENT
  Sex: Female
  Weight: 87.0906 kg

DRUGS (43)
  1. ACCOLATE [Concomitant]
  2. TOPROL-XL [Concomitant]
  3. GLIPIZIDE [Concomitant]
  4. ISOSORBIDE DINITRATE [Concomitant]
  5. CELEBREX [Concomitant]
  6. CARDIZEM [Concomitant]
  7. NEURONTIN [Concomitant]
  8. APIDRA [Concomitant]
  9. NITROGLYCERIN [Concomitant]
  10. AGGRENOX [Concomitant]
  11. PREMARIN [Concomitant]
  12. BENADRYL [Concomitant]
  13. ESCITALOPRAM [Concomitant]
  14. LYRICA [Concomitant]
  15. SCOPOLAMINE [Concomitant]
  16. APAP TAB [Concomitant]
  17. METOCLOPRAMIDE [Suspect]
     Indication: GASTROOESOPHAGEAL REFLUX DISEASE
     Dosage: 10 MG;BID;PO
     Route: 048
     Dates: start: 20040206, end: 20090501
  18. AMBIEN [Concomitant]
  19. LANTUS [Concomitant]
  20. PHENERGAN [Concomitant]
  21. VYTORIN [Concomitant]
  22. LIDOCAINE [Concomitant]
  23. SERTRALINE HYDROCHLORIDE [Concomitant]
  24. TETRABENAZINE [Concomitant]
  25. ASPIRIN [Concomitant]
  26. GLUCOPHAGE [Concomitant]
  27. INSULIN [Concomitant]
  28. LIDODERM [Concomitant]
  29. PROFULSID [Concomitant]
  30. AXID [Concomitant]
  31. CLARITIN [Concomitant]
  32. GLUCOTROL [Concomitant]
  33. NIZATIDINE [Concomitant]
  34. TUSSINEX [Concomitant]
  35. XENICAL [Concomitant]
  36. ZOLOFT [Concomitant]
  37. CELEBREX [Concomitant]
  38. CYMBALTA [Concomitant]
  39. DIOVAN [Concomitant]
  40. FLUCONAZOLE [Concomitant]
  41. LESCOL [Concomitant]
  42. VITAMIN E [Concomitant]
  43. ZOCOR [Concomitant]

REACTIONS (79)
  - EMOTIONAL DISORDER [None]
  - DIABETES MELLITUS [None]
  - ARTHRITIS [None]
  - HIATUS HERNIA [None]
  - HEADACHE [None]
  - CARPAL TUNNEL SYNDROME [None]
  - HYPOACUSIS [None]
  - ANGINA PECTORIS [None]
  - DILATATION ATRIAL [None]
  - TARDIVE DYSKINESIA [None]
  - GASTROOESOPHAGEAL REFLUX DISEASE [None]
  - SINUSITIS [None]
  - NEUROPATHY PERIPHERAL [None]
  - LUMBAR SPINAL STENOSIS [None]
  - LACERATION [None]
  - ADJUSTMENT DISORDER [None]
  - DEPRESSION [None]
  - NAUSEA [None]
  - MITRAL VALVE CALCIFICATION [None]
  - EXTRAPYRAMIDAL DISORDER [None]
  - ECONOMIC PROBLEM [None]
  - DRY EYE [None]
  - EPICONDYLITIS [None]
  - BRONCHIAL HYPERREACTIVITY [None]
  - MYOCARDIAL INFARCTION [None]
  - CHOREA [None]
  - CORONARY ARTERY DISEASE [None]
  - DIABETIC RETINOPATHY [None]
  - BURSITIS [None]
  - VITAMIN D DEFICIENCY [None]
  - ARTERIOSCLEROSIS CORONARY ARTERY [None]
  - DYSKINESIA [None]
  - GASTRIC BYPASS [None]
  - HYPOAESTHESIA [None]
  - SCIATICA [None]
  - INSOMNIA [None]
  - ANAEMIA [None]
  - PROTRUSION TONGUE [None]
  - COGNITIVE DISORDER [None]
  - HYPERCHOLESTEROLAEMIA [None]
  - ARTHROPATHY [None]
  - ACUTE CORONARY SYNDROME [None]
  - DYSLIPIDAEMIA [None]
  - PAIN [None]
  - INFLUENZA [None]
  - DIZZINESS [None]
  - EAR PAIN [None]
  - GRIMACING [None]
  - FACIAL PAIN [None]
  - PERICARDIAL EFFUSION [None]
  - OESOPHAGEAL STENOSIS [None]
  - URINARY TRACT INFECTION [None]
  - ABDOMINAL PAIN UPPER [None]
  - DIABETIC GASTROPARESIS [None]
  - OESOPHAGEAL HYPOMOTILITY [None]
  - ACQUIRED OESOPHAGEAL WEB [None]
  - GLAUCOMA [None]
  - CATARACT [None]
  - BRONCHITIS [None]
  - VERTIGO [None]
  - TEMPOROMANDIBULAR JOINT SYNDROME [None]
  - STRESS [None]
  - COSTOCHONDRITIS [None]
  - HEPATIC STEATOSIS [None]
  - ADHESION [None]
  - HAEMORRHOIDS [None]
  - BRADYKINESIA [None]
  - HYPERTENSION [None]
  - ASTHMA [None]
  - DYSPHAGIA [None]
  - COLONIC POLYP [None]
  - COUGH [None]
  - CHRONIC OBSTRUCTIVE PULMONARY DISEASE [None]
  - HYPERLIPIDAEMIA [None]
  - BALANCE DISORDER [None]
  - VISION BLURRED [None]
  - BACK PAIN [None]
  - CHEST PAIN [None]
  - DYSPNOEA [None]
